FAERS Safety Report 24875854 (Version 1)
Quarter: 2025Q1

REPORT INFORMATION
  Report Type: Report from Study
  Country: DE (occurrence: DE)
  Receive Date: 20250122
  Receipt Date: 20250122
  Transmission Date: 20250408
  Serious: Yes (Other)
  Sender: JOHNSON AND JOHNSON
  Company Number: DE-JNJFOC-20240528613

PATIENT

DRUGS (6)
  1. IMBRUVICA [Suspect]
     Active Substance: IBRUTINIB
     Indication: Mantle cell lymphoma
     Route: 048
  2. CYCLOPHOSPHAMIDE\DOXORUBICIN\PREDNISONE\RITUXIMAB\VINCRISTINE [Suspect]
     Active Substance: CYCLOPHOSPHAMIDE\DOXORUBICIN\PREDNISONE\RITUXIMAB\VINCRISTINE
     Indication: Mantle cell lymphoma
     Route: 065
  3. CISPLATIN [Suspect]
     Active Substance: CISPLATIN
     Indication: Mantle cell lymphoma
     Route: 065
  4. CYTARABINE [Suspect]
     Active Substance: CYTARABINE
  5. DEXAMETHASONE [Suspect]
     Active Substance: DEXAMETHASONE
  6. RITUXIMAB [Suspect]
     Active Substance: RITUXIMAB

REACTIONS (26)
  - Diarrhoea [Unknown]
  - Coronavirus infection [Unknown]
  - Acute kidney injury [Unknown]
  - Platelet count decreased [Unknown]
  - Neutrophil count decreased [Unknown]
  - Anaemia [Unknown]
  - White blood cell count decreased [Unknown]
  - Febrile neutropenia [Unknown]
  - Hypokalaemia [Unknown]
  - Sepsis [Unknown]
  - Pneumonia [Unknown]
  - Herpes zoster [Unknown]
  - Lymphocyte count decreased [Unknown]
  - Nausea [Unknown]
  - Vomiting [Unknown]
  - Infection [Unknown]
  - Stomatitis [Unknown]
  - Device related infection [Unknown]
  - Administration site reaction [Unknown]
  - Fatigue [Unknown]
  - Hypertension [Unknown]
  - Nervous system disorder [Unknown]
  - Cardiac disorder [Unknown]
  - Mucosal inflammation [Unknown]
  - Pyrexia [Unknown]
  - Decreased appetite [Unknown]
